FAERS Safety Report 5558941-8 (Version None)
Quarter: 2007Q4

REPORT INFORMATION
  Report Type: 
  Country: None (occurrence: None)
  Receive Date: 20071214
  Receipt Date: 20071203
  Transmission Date: 20080405
  Serious: Yes (Disabling, Other)
  Sender: FDA-Public Use
  Company Number: GB-PFIZER INC-2007103668

PATIENT
  Age: 38 Year
  Sex: Female

DRUGS (7)
  1. CHAMPIX [Suspect]
     Indication: SMOKING CESSATION THERAPY
     Route: 048
     Dates: start: 20071031, end: 20071119
  2. GABAPENTIN [Suspect]
     Indication: NEURALGIA
     Route: 048
  3. CLENIL [Concomitant]
     Dosage: TEXT:100UG
     Route: 055
  4. ORAMORPH SR [Concomitant]
     Indication: PAIN
     Route: 048
  5. ALBUTEROL [Concomitant]
     Dosage: TEXT:2 DOSE FORMS
     Route: 055
  6. TIBOLONE [Concomitant]
     Indication: ENDOMETRIOSIS
     Route: 048
  7. TRAMADOL HCL [Concomitant]
     Indication: PAIN
     Route: 048

REACTIONS (6)
  - ABDOMINAL PAIN [None]
  - ABDOMINAL TENDERNESS [None]
  - CONFUSIONAL STATE [None]
  - DIZZINESS [None]
  - NAUSEA [None]
  - TENDERNESS [None]
